FAERS Safety Report 4860440-3 (Version None)
Quarter: 2005Q4

REPORT INFORMATION
  Report Type: 
  Country: None (occurrence: None)
  Receive Date: 20051215
  Receipt Date: 20051202
  Transmission Date: 20060501
  Serious: Yes (Hospitalization)
  Sender: FDA-Public Use
  Company Number: 2005163468

PATIENT
  Age: 67 Year
  Sex: Female
  Weight: 156 kg

DRUGS (4)
  1. ZYVOX [Suspect]
     Indication: ILL-DEFINED DISORDER
  2. ZOLEDRONIC ACID (ZOLEDRONIC ACID) [Suspect]
     Indication: MULTIPLE MYELOMA
  3. GEMZAR [Suspect]
     Indication: PANCREATIC CARCINOMA
     Dosage: 1290 MG (QW); INTRAVENOUS
     Route: 042
     Dates: start: 20050322
  4. ANTIBIOTICS (ANTIBIOTICS) [Suspect]
     Indication: ILL-DEFINED DISORDER

REACTIONS (6)
  - CELLULITIS [None]
  - CLOSTRIDIUM COLITIS [None]
  - DIARRHOEA [None]
  - FAECAL INCONTINENCE [None]
  - FLUID OVERLOAD [None]
  - PULMONARY OEDEMA [None]
